FAERS Safety Report 11982197 (Version 2)
Quarter: 2016Q2

REPORT INFORMATION
  Report Type: Spontaneous
  Country: DE (occurrence: DE)
  Receive Date: 20160201
  Receipt Date: 20160411
  Transmission Date: 20160815
  Serious: Yes (Hospitalization, Other)
  Sender: FDA-Public Use
  Company Number: DE-AMGEN-DEUSP2016010324

PATIENT
  Sex: Male

DRUGS (26)
  1. RANITIDIN [Concomitant]
     Active Substance: RANITIDINE HYDROCHLORIDE
     Indication: PROPHYLAXIS
     Dosage: 150 MG, 1 TIME A DAY FOR 22 DAYS
     Route: 048
     Dates: start: 20151208, end: 20160105
  2. MESNA. [Concomitant]
     Active Substance: MESNA
     Indication: PROPHYLAXIS
     Dosage: 800 MG, 1 TIMES A DAY FOR 1 DAY
     Route: 048
     Dates: start: 20160106, end: 20160106
  3. FUROSEMID                          /00032601/ [Concomitant]
     Active Substance: FUROSEMIDE
     Indication: PROPHYLAXIS
     Dosage: 40 MG, 1 TIMES A DAY FOR 1 DAY
     Route: 048
     Dates: start: 20160109, end: 20160109
  4. DOXORUBICINE                       /00330901/ [Suspect]
     Active Substance: DOXORUBICIN
     Indication: B-CELL LYMPHOMA
     Dosage: 90.14 MG, 1 TIMES IN 2 WEEKS FOR 1 DAYS
     Route: 042
     Dates: start: 20151217, end: 20151217
  5. OXETACAIN [Concomitant]
     Indication: ANTACID THERAPY
     Dosage: 5 ML, 4 TIMES A DAY FOR 4 DAYS
     Route: 048
     Dates: start: 20151230, end: 20160102
  6. RANITIDIN [Concomitant]
     Active Substance: RANITIDINE HYDROCHLORIDE
     Dosage: 50 MG, 1 TIME A DAY FOR 22 DAYS
     Route: 048
     Dates: start: 20151208, end: 20160105
  7. COLECALCIFEROL [Concomitant]
     Active Substance: CHOLECALCIFEROL
     Indication: PROPHYLAXIS
     Dosage: 20000 IU, 1 TIMES A DAY FOR 1 DAY
     Route: 048
     Dates: start: 20160104, end: 20160111
  8. POTASSIUM HYDROGEN CARBONATE W/SODIUM CITRATE [Concomitant]
     Indication: HYPOKALAEMIA
     Dosage: 40 MMOL, 1 TIMES A DAY
     Route: 048
     Dates: start: 20160106
  9. RITUXIMAB [Suspect]
     Active Substance: RITUXIMAB
     Indication: B-CELL LYMPHOMA
     Dosage: 661.9 MG, 1 TIMES IN 2 WEEKS FOR 30 DAYS
     Route: 042
     Dates: start: 20151207, end: 20160105
  10. PREDNISONE. [Suspect]
     Active Substance: PREDNISONE
     Indication: B-CELL LYMPHOMA
     Dosage: 100 MG, EVERY 2 WEEKS FOR 20 DAYS
     Route: 048
     Dates: start: 20151218, end: 20160106
  11. VINCRISTINE [Suspect]
     Active Substance: VINCRISTINE
     Indication: B-CELL LYMPHOMA
     Dosage: 3.66 MG, 1 TIMES IN 2 WEEKS FOR 1 DAYS
     Route: 042
     Dates: start: 20151217, end: 20151217
  12. DIMETINDENE MALEATE [Concomitant]
     Active Substance: DIMETHINDENE MALEATE
     Indication: PROPHYLAXIS
     Dosage: 4 MG, 1 TIMES A DAY FOR 1 DAY
     Route: 048
     Dates: start: 20160106, end: 20160106
  13. FENOTEROL HYDROBROMIDE W/IPRATROPIU/00616101/ [Concomitant]
     Indication: ASTHMA
     Dosage: 50 MCG, 2 TIMES A DAY
     Route: 045
  14. ENOXAPARIN SODIUM. [Concomitant]
     Active Substance: ENOXAPARIN SODIUM
     Indication: PROPHYLAXIS
     Dosage: 40 MG, 1 TIMES A DAY
     Route: 058
     Dates: start: 20151229
  15. PEGFILGRASTIM [Suspect]
     Active Substance: PEGFILGRASTIM
     Indication: B-CELL LYMPHOMA
     Dosage: 6 MG, PRN FOR 1 DAY
     Route: 058
     Dates: start: 20151219, end: 20151219
  16. FLUTICASONE PROPIONATE\SALMETEROL XINAFOATE [Concomitant]
     Active Substance: FLUTICASONE PROPIONATE\SALMETEROL XINAFOATE
     Indication: ASTHMA
     Dosage: 222 MCG, 2 TIMES A DAY
     Route: 048
  17. METOCLOPRAMIDE. [Concomitant]
     Active Substance: METOCLOPRAMIDE
     Indication: PROPHYLAXIS
     Dosage: 20 GTT, 1 TIMES A DAY FOR 1 DAY
     Route: 048
     Dates: start: 20160108
  18. CYCLOPHOSPHAMIDE. [Suspect]
     Active Substance: CYCLOPHOSPHAMIDE
     Indication: B-CELL LYMPHOMA
     Dosage: 1380.2 MG, 1 TIMES IN 2 WEEKS FOR 1 DAYS
     Route: 042
     Dates: start: 20151217, end: 20151217
  19. PARACETAMOL [Concomitant]
     Active Substance: ACETAMINOPHEN
     Indication: PAIN
     Dosage: 1000 MG, 1 TIMES A DAY FOR 1 DAY
     Route: 048
     Dates: start: 20160106, end: 20160106
  20. MORPHIN                            /00036302/ [Concomitant]
     Indication: PAIN
     Dosage: 2.5 MG, 2 TIMES A DAY FOR 1 DAY
     Route: 048
     Dates: start: 20160108, end: 20160108
  21. PEGFILGRASTIM [Suspect]
     Active Substance: PEGFILGRASTIM
     Dosage: 6 MG, 1 TIMES A DAY FOR 1 DAY
     Route: 058
     Dates: start: 20160109, end: 20160109
  22. SULFAMETHOXAZOLE AND TRIMETHOPRIM [Concomitant]
     Active Substance: SULFAMETHOXAZOLE\TRIMETHOPRIM
     Indication: PROPHYLAXIS
     Dosage: 960 MG, 3 TIMES A WEEK
     Route: 048
     Dates: start: 20151222
  23. PANTOPRAZOLE [Concomitant]
     Active Substance: PANTOPRAZOLE SODIUM
     Indication: PROPHYLAXIS
     Dosage: 40 MG, 2 TIMES A DAY
     Route: 048
     Dates: start: 20051230
  24. PARACETAMOL [Concomitant]
     Active Substance: ACETAMINOPHEN
     Indication: PYREXIA
     Dosage: 1000 MG, 1 TIMES A DAY
     Route: 048
     Dates: start: 20160103, end: 20160105
  25. TRAMADOL. [Concomitant]
     Active Substance: TRAMADOL
     Indication: PAIN
     Dosage: 100 MG/ML, 15 DROPS/DAY
     Route: 048
     Dates: start: 20160109
  26. PIPERACILLIN W/TAZOBACTAM          /01173601/ [Concomitant]
     Indication: INFECTION
     Dosage: 4G/0.5, 3/D
     Route: 048
     Dates: start: 20160106

REACTIONS (1)
  - Liver abscess [Recovered/Resolved]

NARRATIVE: CASE EVENT DATE: 20160108
